FAERS Safety Report 10083112 (Version 2)
Quarter: 2014Q2

REPORT INFORMATION
  Report Type: Spontaneous
  Country: FR (occurrence: FR)
  Receive Date: 20140417
  Receipt Date: 20140425
  Transmission Date: 20141212
  Serious: Yes (Hospitalization)
  Sender: FDA-Public Use
  Company Number: FR-UCBSA-118382

PATIENT
  Age: 77 Year
  Sex: Male

DRUGS (4)
  1. KEPPRA [Suspect]
     Indication: CONVULSION
     Route: 048
     Dates: start: 20140311, end: 20140314
  2. RISPERDAL [Concomitant]
  3. STILNOX [Concomitant]
  4. VALIUM [Concomitant]

REACTIONS (1)
  - Mixed liver injury [Unknown]
